FAERS Safety Report 6979671-1 (Version None)
Quarter: 2010Q3

REPORT INFORMATION
  Report Type: 
  Country: None (occurrence: None)
  Receive Date: 20100908
  Receipt Date: 20100823
  Transmission Date: 20110219
  Serious: Yes (Hospitalization)
  Sender: FDA-Public Use
  Company Number: 017439

PATIENT
  Sex: Female
  Weight: 66 kg

DRUGS (8)
  1. CERTOLIZUMAB  PEGOL (CERTOLIZUMAB PEGOL) [Suspect]
     Indication: RHEUMATOID ARTHRITIS
     Dosage: (400 MG 1X/4 WEEKS SUBCUTANEOUS)
     Route: 058
     Dates: start: 20091228, end: 20100804
  2. METHOTREXATE [Concomitant]
  3. FOLIC ACID [Concomitant]
  4. PREDNISOLONE [Concomitant]
  5. INDOMETHACIN [Concomitant]
  6. FAMOTIDINE [Concomitant]
  7. TEPRENONE [Concomitant]
  8. ZOLPIDEM TARTRATE [Concomitant]

REACTIONS (6)
  - AORTIC ANEURYSM RUPTURE [None]
  - BLOOD PRESSURE INCREASED [None]
  - CAROTID ARTERY ANEURYSM [None]
  - INTRACRANIAL ANEURYSM [None]
  - PROTHROMBIN LEVEL INCREASED [None]
  - SUBARACHNOID HAEMORRHAGE [None]
